FAERS Safety Report 4371457-X (Version None)
Quarter: 2004Q2

REPORT INFORMATION
  Report Type: 
  Country: None (occurrence: None)
  Receive Date: 20040604
  Receipt Date: 20040521
  Transmission Date: 20050107
  Serious: Yes (Other)
  Sender: FDA-Public Use
  Company Number: A-US2004-05972

PATIENT
  Age: 79 Year
  Sex: Female
  Weight: 50.8 kg

DRUGS (17)
  1. TRACLEER [Suspect]
     Indication: PULMONARY HYPERTENSION
     Dosage: 62.5 MG, BID, ORAL
     Route: 048
     Dates: start: 20031001
  2. COUMADIN [Concomitant]
  3. CARDIZEM [Concomitant]
  4. FOSAMAX [Concomitant]
  5. ZANTAC [Concomitant]
  6. SYNTHROID [Concomitant]
  7. VIOXX [Concomitant]
  8. DIOVAN ^CIBA-GEIGY^ (VALSARTAN) [Concomitant]
  9. NORVASC [Concomitant]
  10. PREDNISONE TAB [Concomitant]
  11. ASPIRIN [Concomitant]
  12. LOPRESSOR [Concomitant]
  13. DIGOXIN [Concomitant]
  14. PREMARIN [Concomitant]
  15. REGLAN [Concomitant]
  16. LASIX [Concomitant]
  17. NITROGLYCERIN TRANSDERMAL SYSTEM (GLYCERYL TRINITRATE) [Concomitant]

REACTIONS (11)
  - ABDOMINAL PAIN [None]
  - CHOLANGITIS [None]
  - CHROMATURIA [None]
  - DIARRHOEA [None]
  - GASTRIC ULCER HAEMORRHAGE [None]
  - JAUNDICE [None]
  - LIVER FUNCTION TEST ABNORMAL [None]
  - NASOPHARYNGITIS [None]
  - PHARYNGOLARYNGEAL PAIN [None]
  - PRURITUS [None]
  - PYREXIA [None]
